FAERS Safety Report 8058773-5 (Version None)
Quarter: 2012Q1

REPORT INFORMATION
  Report Type: 
  Country: None (occurrence: None)
  Receive Date: 20120120
  Receipt Date: 20120112
  Transmission Date: 20120608
  Serious: Yes (Other)
  Sender: FDA-Public Use
  Company Number: US-BAYER-2011-014014

PATIENT
  Age: 17 Year
  Sex: Female
  Weight: 63.492 kg

DRUGS (25)
  1. KETOROLAC TROMETHAMINE [Concomitant]
     Dosage: 10 MG, UNK
  2. ACIDOPHILUS [Concomitant]
  3. PREDNISONE [Concomitant]
     Dosage: 20 MG, UNK
  4. HYDROCODONE BITARTRATE AND ACETAMINOPHEN [Concomitant]
  5. CIPROFLOXACIN [Concomitant]
     Dosage: 500 MG, UNK
  6. CEFPROZIL [Concomitant]
     Dosage: 500 MG, UNK
  7. POLYETHYLENE GLYCOL [Concomitant]
     Dosage: 20 MG, UNK
  8. CITRUCEL [Concomitant]
  9. YASMIN [Suspect]
     Indication: MENORRHAGIA
  10. XOPENEX [Concomitant]
  11. HYDROCODONE BITARTRATE [Concomitant]
  12. PROTONIX [Concomitant]
     Dosage: 20 MG, UNK
  13. FLUCONAZOLE [Concomitant]
     Dosage: 150 MG, UNK
  14. DOCUSATE SODIUM [Concomitant]
  15. METOCLOPRAMIDE [Concomitant]
     Dosage: 10 MG, UNK
  16. LEXAPRO [Concomitant]
  17. DROSPIRENONE AND ETHINYL ESTRADIOL [Suspect]
     Indication: MENORRHAGIA
  18. FLOMAX [Concomitant]
     Dosage: 0.4 MG, UNK
  19. MIRALAX [Concomitant]
  20. YASMIN [Suspect]
     Indication: ACNE
     Dosage: UNK
     Dates: start: 20080401, end: 20091001
  21. DROSPIRENONE AND ETHINYL ESTRADIOL [Suspect]
     Indication: ACNE
     Dosage: UNK
     Dates: start: 20080401, end: 20091001
  22. HYDROCODONE BITARTRATE [Concomitant]
  23. AMITIZA [Concomitant]
     Dosage: 8 MCG/24HR, UNK
  24. VITAMIN TAB [Concomitant]
  25. SULFAMETHOXAZOLE AND TRIMETHOPRIM DOUBLE STRENGTH [Concomitant]

REACTIONS (9)
  - CHOLECYSTECTOMY [None]
  - PAIN [None]
  - VOMITING [None]
  - NAUSEA [None]
  - DIARRHOEA [None]
  - GASTROINTESTINAL DISORDER [None]
  - BACK PAIN [None]
  - CHOLECYSTITIS CHRONIC [None]
  - ABDOMINAL PAIN UPPER [None]
